FAERS Safety Report 9850250 (Version 1)
Quarter: 2014Q1

REPORT INFORMATION
  Report Type: Spontaneous
  Country: FR (occurrence: FR)
  Receive Date: 20140128
  Receipt Date: 20140128
  Transmission Date: 20141002
  Serious: Yes (Other)
  Sender: FDA-Public Use
  Company Number: PHHY2014FR008027

PATIENT
  Age: 65 Year
  Sex: Female

DRUGS (3)
  1. BISOPROLOL SANDOZ [Suspect]
     Indication: HYPERTENSION
     Dosage: 2.5 MG, QD
     Route: 048
     Dates: start: 20130619, end: 20130705
  2. LIPANTHYL [Concomitant]
     Indication: HYPERCHOLESTEROLAEMIA
  3. INEXIUM [Concomitant]

REACTIONS (2)
  - Fall [Recovered/Resolved]
  - Hypotension [Recovered/Resolved]
